FAERS Safety Report 5074126-6 (Version None)
Quarter: 2006Q3

REPORT INFORMATION
  Report Type: 
  Country: None (occurrence: None)
  Receive Date: 20060808
  Receipt Date: 20060727
  Transmission Date: 20061208
  Serious: Yes (Hospitalization)
  Sender: FDA-Public Use
  Company Number: FR-BRISTOL-MYERS SQUIBB COMPANY-13458989

PATIENT
  Age: 22 Year
  Sex: Male

DRUGS (7)
  1. ELISOR TABS 20 MG [Suspect]
     Route: 048
  2. PROGRAF [Suspect]
     Dates: start: 20000101
  3. EPITOMAX [Suspect]
  4. EPITOMAX [Suspect]
  5. NEXIUM [Suspect]
  6. NORMISON [Suspect]
  7. IMUREL [Suspect]
     Dates: start: 20000101

REACTIONS (5)
  - AREFLEXIA [None]
  - DYSAESTHESIA [None]
  - METABOLIC ACIDOSIS [None]
  - PARAESTHESIA [None]
  - RENAL FAILURE ACUTE [None]
